FAERS Safety Report 15956142 (Version 1)
Quarter: 2019Q1

REPORT INFORMATION
  Report Type: Spontaneous
  Country: CN (occurrence: CN)
  Receive Date: 20190213
  Receipt Date: 20190213
  Transmission Date: 20190417
  Serious: Yes (Other)
  Sender: FDA-Public Use
  Company Number: CN-PFIZER INC-2019051551

PATIENT
  Age: 3 Year
  Sex: Male
  Weight: 31 kg

DRUGS (3)
  1. SOLU-MEDROL [Suspect]
     Active Substance: METHYLPREDNISOLONE SODIUM SUCCINATE
     Indication: BRONCHITIS
     Dosage: 30 MG, 1X/DAY
     Route: 041
     Dates: start: 20190118, end: 20190118
  2. BI LI SHU [Concomitant]
     Indication: BRONCHITIS
     Dosage: 1.5 G, 1X/DAY
     Route: 041
     Dates: start: 20190118, end: 20190118
  3. ERYTHROMYCIN LACTOBIONATE [Concomitant]
     Active Substance: ERYTHROMYCIN LACTOBIONATE
     Indication: BRONCHITIS
     Dosage: 350000 IU, 1X/DAY
     Route: 041
     Dates: start: 20190118, end: 20190118

REACTIONS (2)
  - Rash [Recovering/Resolving]
  - Pruritus [Recovering/Resolving]

NARRATIVE: CASE EVENT DATE: 20190118
